FAERS Safety Report 6381527-2 (Version None)
Quarter: 2009Q3

REPORT INFORMATION
  Report Type: 
  Country: None (occurrence: None)
  Receive Date: 20090925
  Receipt Date: 20090922
  Transmission Date: 20100115
  Serious: Yes (Life-Threatening, Hospitalization)
  Sender: FDA-Public Use
  Company Number: ADR30402009

PATIENT
  Age: 72 Year
  Sex: Male

DRUGS (16)
  1. SIMVASTATIN [Suspect]
     Indication: HYPERCHOLESTEROLAEMIA
     Dosage: 80MG ORAL
     Route: 048
  2. LISINOPRIL [Suspect]
     Indication: HYPERTENSION
     Dosage: 20MG
     Dates: start: 20041201, end: 20080930
  3. CANDESARTAN CILEXETIL [Concomitant]
  4. AMOXICILLIN AND CLAVULANATE POTASSIUM [Concomitant]
  5. ERYTHROMYCIN [Concomitant]
  6. ADIZEM-XL [Concomitant]
  7. ALLOPURINOL [Concomitant]
  8. DIGOXIN [Concomitant]
  9. EZETIMIBE [Concomitant]
  10. FUROSEMIDE [Concomitant]
  11. GLIMEPIRIDE [Concomitant]
  12. LEVOTHYROXINE SODIUM [Concomitant]
  13. METFORMIN [Concomitant]
  14. NEBIVOLOL [Concomitant]
  15. PIOGLITAZONE HCL [Concomitant]
  16. WARFARIN SODIUM [Concomitant]

REACTIONS (4)
  - ANGIOEDEMA [None]
  - DYSPHONIA [None]
  - OROPHARYNGEAL PAIN [None]
  - RESPIRATORY DISTRESS [None]
